FAERS Safety Report 8766200 (Version 1)
Quarter: 2012Q4

REPORT INFORMATION
  Report Type: 
  Country: US (occurrence: US)
  Receive Date: 20120904
  Receipt Date: 20120904
  Transmission Date: 20130627
  Serious: No
  Sender: FDA-Public Use
  Company Number: US-009507513-1208USA004288

PATIENT

DRUGS (7)
  1. FOSAMAX [Suspect]
     Indication: OSTEOPOROSIS
     Dosage: 70 mg, qw
     Route: 048
     Dates: start: 201008
  2. COREG [Concomitant]
     Indication: BLOOD PRESSURE
  3. ASPIRIN [Concomitant]
  4. LISINOPRIL [Concomitant]
  5. LASIX (FUROSEMIDE) [Concomitant]
  6. PRAVACHOL [Concomitant]
  7. GABAPENTIN [Concomitant]

REACTIONS (1)
  - Foot fracture [Recovering/Resolving]
